FAERS Safety Report 12394105 (Version 1)
Quarter: 2016Q2

REPORT INFORMATION
  Report Type: Spontaneous
  Country: FR (occurrence: FR)
  Receive Date: 20160523
  Receipt Date: 20160523
  Transmission Date: 20160815
  Serious: Yes (Hospitalization)
  Sender: FDA-Public Use
  Company Number: FR-PFIZER INC-2016259536

PATIENT
  Age: 58 Year
  Sex: Male

DRUGS (12)
  1. ZYLORIC [Concomitant]
     Active Substance: ALLOPURINOL
     Dosage: UNK
     Dates: end: 20160329
  2. AMOXICILLINE /00249602/ [Suspect]
     Active Substance: AMOXICILLIN
     Indication: LUNG INFECTION
     Dosage: 1 G, 3X/DAY
     Route: 048
     Dates: start: 20160324, end: 20160329
  3. CELLCEPT [Concomitant]
     Active Substance: MYCOPHENOLATE MOFETIL\MYCOPHENOLATE MOFETIL HYDROCHLORIDE
     Dosage: UNK
     Dates: end: 20160329
  4. LANTUS [Concomitant]
     Active Substance: INSULIN GLARGINE
  5. NOVORAPID [Concomitant]
     Active Substance: INSULIN ASPART
  6. ADVAGRAF [Concomitant]
     Active Substance: TACROLIMUS
  7. AMLOR [Suspect]
     Active Substance: AMLODIPINE BESYLATE
     Indication: HYPERTENSION
     Dosage: 5 MG, 1X/DAY
     Route: 048
     Dates: start: 20160215, end: 20160330
  8. CORTANCYL [Concomitant]
     Active Substance: PREDNISONE
  9. COAPROVEL [Concomitant]
     Active Substance: HYDROCHLOROTHIAZIDE\IRBESARTAN
     Dosage: UNK
     Dates: end: 20160329
  10. ZITHROMAX [Concomitant]
     Active Substance: AZITHROMYCIN DIHYDRATE
  11. BRICANYL [Concomitant]
     Active Substance: TERBUTALINE SULFATE
  12. INNOVAIR [Concomitant]
     Active Substance: BECLOMETHASONE DIPROPIONATE\FORMOTEROL

REACTIONS (1)
  - Agranulocytosis [Recovered/Resolved]

NARRATIVE: CASE EVENT DATE: 20160330
